FAERS Safety Report 14809042 (Version 3)
Quarter: 2018Q4

REPORT INFORMATION
  Report Type: Report from Study
  Country: None (occurrence: US)
  Receive Date: 20180425
  Receipt Date: 20181105
  Transmission Date: 20190204
  Serious: Yes (Other)
  Sender: FDA-Public Use
  Company Number: US-ABBVIE-18P-163-2289456-00

PATIENT
  Age: 74 Year
  Sex: Male

DRUGS (10)
  1. FLOMAX [Concomitant]
     Active Substance: TAMSULOSIN HYDROCHLORIDE
     Indication: PRODUCT USED FOR UNKNOWN INDICATION
  2. IVIG [Concomitant]
     Active Substance: HUMAN IMMUNOGLOBULIN G
     Indication: IMMUNODEFICIENCY
     Dosage: WEEKLY INFUSION
  3. LISINOPRIL. [Concomitant]
     Active Substance: LISINOPRIL
     Indication: HYPERTENSION
     Route: 048
  4. ALFUZOSIN [Concomitant]
     Active Substance: ALFUZOSIN
     Indication: PROSTATIC DISORDER
     Route: 048
  5. VENCLEXTA [Suspect]
     Active Substance: VENETOCLAX
     Route: 048
     Dates: start: 201804, end: 201806
  6. ACYCLOVIR. [Concomitant]
     Active Substance: ACYCLOVIR
     Indication: PRODUCT USED FOR UNKNOWN INDICATION
     Route: 048
  7. VENCLEXTA [Suspect]
     Active Substance: VENETOCLAX
     Indication: CHRONIC LYMPHOCYTIC LEUKAEMIA
     Route: 048
     Dates: end: 2018
  8. VENCLEXTA [Suspect]
     Active Substance: VENETOCLAX
     Dosage: TOOK FOR 5 OR 6 DAYS
     Route: 048
     Dates: start: 20180414, end: 201804
  9. RAPAFLO [Concomitant]
     Active Substance: SILODOSIN
     Indication: PROSTATIC DISORDER
     Route: 048
  10. VENCLEXTA [Suspect]
     Active Substance: VENETOCLAX
     Route: 048
     Dates: start: 201802, end: 2018

REACTIONS (14)
  - Asthenia [Not Recovered/Not Resolved]
  - Gait disturbance [Not Recovered/Not Resolved]
  - Abdominal discomfort [Unknown]
  - Drug intolerance [Unknown]
  - Asthenia [Unknown]
  - Abdominal distension [Recovering/Resolving]
  - Gastrointestinal disorder [Not Recovered/Not Resolved]
  - Nausea [Not Recovered/Not Resolved]
  - Dyspnoea [Not Recovered/Not Resolved]
  - Diarrhoea [Recovering/Resolving]
  - Neoplasm malignant [Not Recovered/Not Resolved]
  - Chronic lymphocytic leukaemia [Unknown]
  - Cardiac disorder [Unknown]
  - Anal incontinence [Unknown]

NARRATIVE: CASE EVENT DATE: 201712
